FAERS Safety Report 12536766 (Version 1)
Quarter: 2016Q3

REPORT INFORMATION
  Report Type: Spontaneous
  Country: EC (occurrence: EC)
  Receive Date: 20160707
  Receipt Date: 20160707
  Transmission Date: 20161109
  Serious: Yes (Death)
  Sender: FDA-Public Use
  Company Number: EC-B.I. PHARMACEUTICALS,INC./RIDGEFIELD-2016-BI-43524EB

PATIENT
  Age: 66 Year
  Sex: Male

DRUGS (1)
  1. VARGATEF [Suspect]
     Active Substance: NINTEDANIB
     Indication: IDIOPATHIC PULMONARY FIBROSIS
     Dosage: 300 MG
     Route: 048
     Dates: start: 20150909, end: 20160610

REACTIONS (2)
  - Idiopathic pulmonary fibrosis [Fatal]
  - Pneumothorax [Fatal]

NARRATIVE: CASE EVENT DATE: 20160610
